FAERS Safety Report 9976206 (Version 1)
Quarter: 2014Q1

REPORT INFORMATION
  Report Type: Report from Study
  Country: US (occurrence: US)
  Receive Date: 20140306
  Receipt Date: 20140306
  Transmission Date: 20141002
  Serious: No
  Sender: FDA-Public Use
  Company Number: US-ABBVIE-13P-163-1166952-00

PATIENT
  Age: 30 Year
  Sex: Male

DRUGS (3)
  1. HUMIRA [Suspect]
     Indication: COLITIS
     Dates: start: 2011, end: 20131010
  2. CELEXA [Concomitant]
     Indication: DEPRESSION
  3. TRAZODONE [Concomitant]
     Indication: INSOMNIA

REACTIONS (4)
  - Feeling cold [Unknown]
  - Abdominal pain upper [Not Recovered/Not Resolved]
  - Crohn^s disease [Not Recovered/Not Resolved]
  - Diarrhoea [Not Recovered/Not Resolved]
